FAERS Safety Report 24373351 (Version 1)
Quarter: 2024Q3

REPORT INFORMATION
  Report Type: Spontaneous
  Country: CA (occurrence: CA)
  Receive Date: 20240927
  Receipt Date: 20240927
  Transmission Date: 20241016
  Serious: Yes (Hospitalization, Other)
  Sender: SANDOZ
  Company Number: CA-SANDOZ-SDZ2024CA083137

PATIENT
  Age: 46 Year
  Sex: Female

DRUGS (5)
  1. ADALIMUMAB [Suspect]
     Active Substance: ADALIMUMAB
     Indication: Crohn^s disease
     Dosage: 40 MG, Q2W
     Route: 058
  2. RITUXIMAB [Suspect]
     Active Substance: RITUXIMAB
     Indication: Encephalitis autoimmune
     Dosage: 375 MG/M2
     Route: 065
  3. TRUXIMA [Suspect]
     Active Substance: RITUXIMAB-ABBS
     Indication: Encephalitis autoimmune
     Dosage: 375 MG/M2; SINGLE-DOSE VIAL - 10 MG/ML
     Route: 065
  4. TRUXIMA [Suspect]
     Active Substance: RITUXIMAB-ABBS
     Dosage: 375 MG/M2; SINGLE-DOSE VIAL - 10 MG/ML
     Route: 065
  5. PREDNISONE [Concomitant]
     Active Substance: PREDNISONE
     Indication: Product used for unknown indication
     Dosage: 50 MG
     Route: 065

REACTIONS (3)
  - Encephalitis autoimmune [Recovered/Resolved]
  - Drug effective for unapproved indication [Recovered/Resolved]
  - Off label use [Recovered/Resolved]
